FAERS Safety Report 20394101 (Version 1)
Quarter: 2022Q1

REPORT INFORMATION
  Report Type: Report from Study
  Country: US (occurrence: US)
  Receive Date: 20220129
  Receipt Date: 20220129
  Transmission Date: 20220424
  Serious: No
  Sender: FDA-Public Use
  Company Number: US-NOVARTISTESTPH-NVSC2022US018955

PATIENT
  Sex: Male

DRUGS (1)
  1. ENTRESTO [Suspect]
     Active Substance: SACUBITRIL\VALSARTAN
     Indication: Hypertensive heart disease
     Dosage: 1.5 DOSAGE FORM, BID (24.26MG IN AM AND  49.51 MG IN PM)
     Route: 048

REACTIONS (1)
  - Wrong technique in product usage process [Unknown]
